FAERS Safety Report 4435059-9 (Version None)
Quarter: 2004Q3

REPORT INFORMATION
  Report Type: 
  Country: None (occurrence: None)
  Receive Date: 20040826
  Receipt Date: 20040826
  Transmission Date: 20050211
  Serious: Yes (Other)
  Sender: FDA-Public Use
  Company Number: None

PATIENT
  Age: 50 Year
  Sex: Female
  Weight: 55.5 kg

DRUGS (5)
  1. PRIMAXIN [Suspect]
     Indication: PSEUDOMONAS INFECTION
     Dosage: 500 MG IV Q 8 H
     Route: 042
     Dates: start: 20040809, end: 20040819
  2. AMPHOTERICIN B [Concomitant]
  3. ACYCLOVIR [Concomitant]
  4. BACTRIM [Concomitant]
  5. LEVAQUIN [Concomitant]

REACTIONS (4)
  - PRURITUS [None]
  - RASH ERYTHEMATOUS [None]
  - RASH PAPULAR [None]
  - URTICARIA [None]
